FAERS Safety Report 6113691-4 (Version None)
Quarter: 2009Q1

REPORT INFORMATION
  Report Type: 
  Country: None (occurrence: None)
  Receive Date: 20090312
  Receipt Date: 20090303
  Transmission Date: 20090719
  Serious: Yes (Other)
  Sender: FDA-Public Use
  Company Number: CH-PFIZER INC-2009177601

PATIENT

DRUGS (5)
  1. ATORVASTATIN CALCIUM [Suspect]
     Indication: HYPERLIPIDAEMIA
     Route: 048
     Dates: end: 20090124
  2. XENALON [Suspect]
     Indication: CARDIAC FAILURE CONGESTIVE
     Route: 048
     Dates: end: 20090109
  3. METO ZEROK [Concomitant]
     Route: 048
  4. MARCUMAR [Concomitant]
     Route: 048
  5. CALCIMAGON-D3 [Concomitant]
     Route: 048

REACTIONS (1)
  - CHOLESTATIC LIVER INJURY [None]
